FAERS Safety Report 6804675-9 (Version None)
Quarter: 2010Q2

REPORT INFORMATION
  Report Type: 
  Country: None (occurrence: None)
  Receive Date: 20100628
  Receipt Date: 20070427
  Transmission Date: 20101027
  Serious: No
  Sender: FDA-Public Use
  Company Number: US-PFIZER INC-2007034596

PATIENT
  Sex: Male
  Weight: 79.545 kg

DRUGS (1)
  1. SUTENT [Suspect]
     Indication: RENAL CANCER
     Dates: start: 20070101

REACTIONS (3)
  - LIMB DISCOMFORT [None]
  - PAIN IN EXTREMITY [None]
  - SKIN DISCOLOURATION [None]
